FAERS Safety Report 5247633-0 (Version None)
Quarter: 2007Q1

REPORT INFORMATION
  Report Type: 
  Country: None (occurrence: None)
  Receive Date: 20070227
  Receipt Date: 20070220
  Transmission Date: 20070707
  Serious: Yes (Other)
  Sender: FDA-Public Use
  Company Number: AT-ABBOTT-07P-009-0359905-00

PATIENT
  Age: 64 Year
  Sex: Female
  Weight: 58 kg

DRUGS (2)
  1. HUMIRA [Suspect]
     Indication: PSORIATIC ARTHROPATHY
     Route: 058
     Dates: start: 20061107
  2. EBETREXAT [Concomitant]
     Indication: PSORIATIC ARTHROPATHY
     Dates: start: 20060901

REACTIONS (1)
  - RED BLOOD CELL SEDIMENTATION RATE INCREASED [None]
